FAERS Safety Report 5676460-5 (Version None)
Quarter: 2008Q2

REPORT INFORMATION
  Report Type: 
  Country: None (occurrence: None)
  Receive Date: 20080310
  Receipt Date: 20080128
  Transmission Date: 20081010
  Serious: Yes (Other)
  Sender: FDA-Public Use
  Company Number: 08-038

PATIENT
  Age: 62 Year
  Sex: Male
  Weight: 68.0396 kg

DRUGS (12)
  1. ALEVE [Suspect]
     Indication: BACK PAIN
     Dosage: 440 MG, DAILY, ORAL
     Route: 048
     Dates: start: 20071201
  2. LOMOTIL [Concomitant]
  3. GAS X [Concomitant]
  4. VITAMIN E [Concomitant]
  5. SELENIUM [Concomitant]
  6. FLAX SEED OIL [Concomitant]
  7. COQ10 [Concomitant]
  8. TYLENOL W/ CODIENE + ACETAMINOPHEN [Concomitant]
  9. SAW PALMETTO [Concomitant]
  10. MULTI-VITAMINS [Concomitant]
  11. RED YEAST RYE [Concomitant]
  12. GREEN ALGAE [Concomitant]

REACTIONS (2)
  - FLATULENCE [None]
  - HAEMATOCHEZIA [None]
